FAERS Safety Report 4979665-1 (Version None)
Quarter: 2006Q2

REPORT INFORMATION
  Report Type: 
  Country: None (occurrence: None)
  Receive Date: 20060418
  Receipt Date: 20051114
  Transmission Date: 20061013
  Serious: Yes (Hospitalization)
  Sender: FDA-Public Use
  Company Number: US_0511123889

PATIENT
  Age: 60 Year
  Sex: Male

DRUGS (3)
  1. CYMBALTA [Suspect]
     Indication: DEPRESSION
     Dosage: 60 MG, ORAL
     Route: 048
     Dates: start: 20051105, end: 20051107
  2. METFORMIN [Concomitant]
  3. ATENOLOL [Concomitant]

REACTIONS (2)
  - RENAL FAILURE [None]
  - SOMNOLENCE [None]
